FAERS Safety Report 7412425-0 (Version None)
Quarter: 2011Q2

REPORT INFORMATION
  Report Type: 
  Country: None (occurrence: None)
  Receive Date: 20110413
  Receipt Date: 20110401
  Transmission Date: 20111010
  Serious: Yes (Hospitalization)
  Sender: FDA-Public Use
  Company Number: PHHY2011US27759

PATIENT
  Age: 20 Year
  Sex: Female
  Weight: 45.351 kg

DRUGS (1)
  1. TOBI [Suspect]
     Indication: PSEUDOMONAS INFECTION
     Dosage: 300 MG, BID, FOR 28 DAY CYCLE
     Dates: start: 20100308

REACTIONS (2)
  - UPPER RESPIRATORY TRACT INFECTION [None]
  - GASTROINTESTINAL DISORDER [None]
